FAERS Safety Report 10227182 (Version 1)
Quarter: 2014Q2

REPORT INFORMATION
  Report Type: Spontaneous
  Country: ES (occurrence: ES)
  Receive Date: 20140610
  Receipt Date: 20140610
  Transmission Date: 20141212
  Serious: Yes (Hospitalization)
  Sender: FDA-Public Use
  Company Number: ES-BAYER-2014-080798

PATIENT
  Age: 87 Year
  Sex: Male

DRUGS (7)
  1. ADIRO 100 [Suspect]
     Indication: ISCHAEMIC HEART DISEASE PROPHYLAXIS
     Dosage: 100 MG, QD
     Route: 048
     Dates: start: 20130615, end: 20130714
  2. ADIRO 100 [Interacting]
     Indication: ISCHAEMIC HEART DISEASE PROPHYLAXIS
  3. ESCITALOPRAM [Interacting]
     Indication: DEPRESSION
     Dosage: 15 MG, QD
     Route: 048
     Dates: start: 20130615, end: 20130714
  4. ORFIDAL [Concomitant]
     Indication: ANXIETY
     Route: 048
     Dates: start: 2008
  5. VALDOXAN [Concomitant]
     Indication: DEPRESSION
     Dosage: 25 MG, QD
     Route: 048
     Dates: start: 20130611
  6. BICALUTAMIDE [Concomitant]
     Indication: PROSTATE CANCER
     Dosage: 50 MG, QD
     Route: 048
     Dates: start: 2011
  7. ELIGARD [Concomitant]
     Indication: PROSTATE CANCER
     Dosage: 45 MG, EVERY 6 MONTHS
     Route: 048
     Dates: start: 2011

REACTIONS (2)
  - Anaemia [Recovered/Resolved]
  - Acute prerenal failure [Recovered/Resolved]
